FAERS Safety Report 16347116 (Version 2)
Quarter: 2020Q2

REPORT INFORMATION
  Report Type: Spontaneous
  Country: US (occurrence: US)
  Receive Date: 20190523
  Receipt Date: 20200623
  Transmission Date: 20200713
  Serious: No
  Sender: FDA-Public Use
  Company Number: US-TARO-2019TAR00305

PATIENT
  Age: 67 Year
  Sex: Female
  Weight: 58.96 kg

DRUGS (2)
  1. CLORAZEPATE DIPOTASSIUM TABLETS USP 7.5 MG [Suspect]
     Active Substance: CLORAZEPATE DIPOTASSIUM
     Indication: IMPAIRED GASTRIC EMPTYING
     Dosage: 7.5 MG, 2X/DAY IN THE MORNING AND EVENING
     Route: 048
     Dates: start: 201902, end: 2019
  2. UNSPECIFIED BLOOD PRESSURE MEDICATION [Concomitant]
     Active Substance: UNSPECIFIED INGREDIENT
     Dosage: UNK

REACTIONS (7)
  - Lip erythema [Recovered/Resolved]
  - Oral discomfort [Recovered/Resolved]
  - Chapped lips [Recovered/Resolved]
  - Off label use [Recovered/Resolved]
  - Pruritus [Recovered/Resolved]
  - Product substitution issue [Recovered/Resolved]
  - Pharyngeal paraesthesia [Recovered/Resolved]

NARRATIVE: CASE EVENT DATE: 201902
